FAERS Safety Report 19191010 (Version 1)
Quarter: 2021Q2

REPORT INFORMATION
  Report Type: Spontaneous
  Country: US (occurrence: US)
  Receive Date: 20210428
  Receipt Date: 20210428
  Transmission Date: 20210717
  Serious: Yes (Hospitalization)
  Sender: FDA-Public Use
  Company Number: US-EISAI MEDICAL RESEARCH-EC-2021-091504

PATIENT
  Age: 20 Year
  Sex: Female

DRUGS (2)
  1. DAYVIGO [Suspect]
     Active Substance: LEMBOREXANT
     Indication: INSOMNIA
     Dosage: AT NIGHT
     Route: 048
     Dates: start: 2021, end: 202104
  2. DAYVIGO [Suspect]
     Active Substance: LEMBOREXANT
     Dosage: AT NIGHT
     Route: 048
     Dates: start: 202104, end: 20210406

REACTIONS (2)
  - Loss of consciousness [Recovered/Resolved]
  - Road traffic accident [Recovered/Resolved]

NARRATIVE: CASE EVENT DATE: 20210407
